FAERS Safety Report 9802600 (Version 1)
Quarter: 2014Q1

REPORT INFORMATION
  Report Type: Spontaneous
  Country: DE (occurrence: DE)
  Receive Date: 20140108
  Receipt Date: 20140108
  Transmission Date: 20141002
  Serious: Yes (Hospitalization)
  Sender: FDA-Public Use
  Company Number: DE-BIOGENIDEC-2014BI000713

PATIENT
  Age: 55 Year
  Sex: Female

DRUGS (2)
  1. AVONEX [Suspect]
     Indication: MULTIPLE SCLEROSIS
     Route: 030
     Dates: start: 20121001
  2. IBUPROFEN [Concomitant]
     Indication: PROPHYLAXIS
     Route: 048

REACTIONS (3)
  - Thyroid neoplasm [Recovered/Resolved]
  - Neuroendocrine tumour [Recovered/Resolved with Sequelae]
  - Intervertebral disc protrusion [Recovered/Resolved with Sequelae]
